FAERS Safety Report 12203051 (Version 2)
Quarter: 2018Q4

REPORT INFORMATION
  Report Type: Spontaneous
  Country: CZ (occurrence: CZ)
  Receive Date: 20160323
  Receipt Date: 20181220
  Transmission Date: 20190204
  Serious: Yes (Life-Threatening, Other)
  Sender: FDA-Public Use
  Company Number: CZ-ACCORD-038857

PATIENT
  Age: 21 Month
  Sex: Female
  Weight: 2.65 kg

DRUGS (6)
  1. CARBOPLATIN. [Suspect]
     Active Substance: CARBOPLATIN
     Indication: MEDULLOBLASTOMA
     Dosage: THREE CYCLES OF CONVENTIONAL INDUCTION COMBINATION CHEMOTHERAPY
  2. THIOTEPA. [Suspect]
     Active Substance: THIOTEPA
     Indication: MEDULLOBLASTOMA
     Dosage: 3 BLOCKS OF CONSOLIDATED CHEMOTHERAPY
  3. VINCRISTINE [Suspect]
     Active Substance: VINCRISTINE
     Indication: MEDULLOBLASTOMA
     Dosage: 3 INDUCTION BLOCKS OF COMBINATION CHEMOTHERAPY
  4. CYCLOPHOSPHAMIDE/CYCLOPHOSPHAMIDE MONOHYDRATE [Suspect]
     Active Substance: CYCLOPHOSPHAMIDE
     Indication: MEDULLOBLASTOMA
  5. CISPLATIN. [Suspect]
     Active Substance: CISPLATIN
     Indication: MEDULLOBLASTOMA
     Dosage: 3 INDUCTION BLOCKS OF COMBINATION CHEMOTHERAPY
  6. ETOPOSIDE. [Suspect]
     Active Substance: ETOPOSIDE
     Indication: MEDULLOBLASTOMA

REACTIONS (3)
  - Off label use [Unknown]
  - Sepsis [Recovered/Resolved]
  - Toxicity to various agents [Recovered/Resolved]
